FAERS Safety Report 4325795-7 (Version None)
Quarter: 2004Q1

REPORT INFORMATION
  Report Type: 
  Country: None (occurrence: None)
  Receive Date: 20040329
  Receipt Date: 20040202
  Transmission Date: 20041129
  Serious: Yes (Other)
  Sender: FDA-Public Use
  Company Number: US-ROCHE-357661

PATIENT
  Age: 30 Year
  Sex: Female
  Weight: 95.3 kg

DRUGS (1)
  1. NAPROXEN SODIUM [Suspect]
     Indication: HEADACHE
     Route: 048
     Dates: start: 20040102, end: 20040106

REACTIONS (6)
  - CHEST PAIN [None]
  - DYSPNOEA [None]
  - HEADACHE [None]
  - NAUSEA [None]
  - PHARMACEUTICAL PRODUCT COMPLAINT [None]
  - VOMITING [None]
